FAERS Safety Report 21729560 (Version 1)
Quarter: 2022Q4

REPORT INFORMATION
  Report Type: Spontaneous
  Country: JP (occurrence: JP)
  Receive Date: 20221214
  Receipt Date: 20221214
  Transmission Date: 20230113
  Serious: Yes (Hospitalization)
  Sender: FDA-Public Use
  Company Number: JP-PFIZER INC-202201362895

PATIENT

DRUGS (1)
  1. CORTRIL [Suspect]
     Active Substance: HYDROCORTISONE
     Dosage: ONE TABLET IN THE MORNING AND ONE TABLET AT NOON
     Route: 048

REACTIONS (1)
  - Coronary artery bypass [Unknown]
